FAERS Safety Report 7784187-9 (Version None)
Quarter: 2011Q3

REPORT INFORMATION
  Report Type: 
  Country: None (occurrence: None)
  Receive Date: 20110928
  Receipt Date: 20110919
  Transmission Date: 20111222
  Serious: Yes (Other)
  Sender: FDA-Public Use
  Company Number: FR-EISAI INC-E3810-04959-SPO-FR

PATIENT
  Age: 59 Year
  Sex: Male

DRUGS (9)
  1. XOLAAM [Concomitant]
  2. RABEPRAZOLE SODIUM [Suspect]
     Indication: GASTRITIS
     Route: 048
     Dates: start: 20080101
  3. PAROXETINE HCL [Concomitant]
  4. ASPIRIN [Concomitant]
  5. PERMIXON [Concomitant]
  6. COZAAR [Concomitant]
  7. CRESTOR [Concomitant]
  8. CHONDROSULF [Concomitant]
  9. OMEXEL [Concomitant]

REACTIONS (2)
  - HELICOBACTER INFECTION [None]
  - MUSCULOSKELETAL CHEST PAIN [None]
